FAERS Safety Report 4997930-9 (Version None)
Quarter: 2006Q2

REPORT INFORMATION
  Report Type: 
  Country: None (occurrence: None)
  Receive Date: 20060508
  Receipt Date: 20060426
  Transmission Date: 20061013
  Serious: Yes (Hospitalization)
  Sender: FDA-Public Use
  Company Number: 2006057136

PATIENT
  Age: 46 Year
  Sex: Male
  Weight: 127.0072 kg

DRUGS (1)
  1. BEXTRA [Suspect]
     Indication: BACK DISORDER
     Dosage: (10 MG)
     Dates: start: 20020712

REACTIONS (8)
  - CARDIAC DISORDER [None]
  - COLLAPSE OF LUNG [None]
  - CORONARY ARTERY SURGERY [None]
  - DYSPEPSIA [None]
  - ILL-DEFINED DISORDER [None]
  - LUNG DISORDER [None]
  - MYOCARDIAL INFARCTION [None]
  - PERIARTHRITIS [None]
